FAERS Safety Report 8186283-3 (Version None)
Quarter: 2012Q1

REPORT INFORMATION
  Report Type: 
  Country: None (occurrence: None)
  Receive Date: 20120306
  Receipt Date: 20120227
  Transmission Date: 20120608
  Serious: Yes (Hospitalization)
  Sender: FDA-Public Use
  Company Number: US-BAYER-200936491NA

PATIENT
  Age: 43 Year
  Sex: Female
  Weight: 57.143 kg

DRUGS (28)
  1. PROMETRIUM [Concomitant]
     Dosage: UNK
     Dates: start: 20040101
  2. METRONIDAZOLE [Concomitant]
     Dosage: UNK
     Dates: start: 20040101
  3. CHROMAGEN FORTE [Concomitant]
     Dosage: UNK
     Dates: start: 20040101
  4. ISOMETHEPTENE/DICHLORALPHENAZONE/APAP [Concomitant]
     Indication: MIGRAINE
     Dosage: UNK
     Dates: start: 20040301, end: 20090401
  5. MAXALT [Concomitant]
     Indication: MIGRAINE
     Dosage: 10 MG, UNK
     Dates: start: 20040301, end: 20090401
  6. AMBIEN [Concomitant]
     Dosage: UNK
     Dates: start: 20040101
  7. OMNICEF [Concomitant]
     Dosage: UNK
     Dates: start: 20040101
  8. RENOVA [Concomitant]
     Dosage: UNK
     Dates: start: 20040101
  9. COMPRO [Concomitant]
     Dosage: UNK
     Dates: start: 20040101
  10. PSEUDOVENT [Concomitant]
     Dosage: UNK
     Dates: start: 20040101
  11. CIPROFLOXACIN HCL [Concomitant]
     Dosage: UNK
     Dates: start: 20040101
  12. TOPIRAMATE [Concomitant]
     Dosage: UNK
     Dates: start: 20040101
  13. RESTASIS [Concomitant]
     Dosage: UNK
     Dates: start: 20040101
  14. CELEBREX [Concomitant]
     Dosage: UNK
     Dates: start: 20080401
  15. NITROFURANTOIN [Concomitant]
     Dosage: UNK
     Dates: start: 20040101
  16. DURADRIN [Concomitant]
     Dosage: UNK
     Dates: start: 20040101
  17. PATANOL [Concomitant]
     Dosage: UNK
     Dates: start: 20040101
  18. HYDROCODONE BITARTRATE [Concomitant]
     Dosage: UNK
     Dates: start: 20040101
  19. TOPAMAX [Concomitant]
     Dosage: UNK
     Dates: start: 20040101
  20. CELEXA [Concomitant]
     Indication: DEPRESSION
     Dosage: 40 MG, UNK
     Dates: start: 20040101
  21. CITALOPRAM HYDROBROMIDE [Concomitant]
     Dosage: 40 MG, UNK
     Dates: start: 20040101
  22. SPIRONOLACTONE [Concomitant]
     Dosage: UNK
     Dates: start: 20040101
  23. CLARITHROMYCIN [Concomitant]
     Dosage: UNK
     Dates: start: 20040101
  24. CEPHALEXIN [Concomitant]
     Dosage: UNK
     Dates: start: 20040101
  25. YASMIN [Suspect]
     Indication: CONTRACEPTION
     Dosage: UNK
     Dates: start: 20041001, end: 20041101
  26. DETROL [Concomitant]
     Dosage: UNK
     Dates: start: 20040101
  27. ZOLPIDEM TARTRATE [Concomitant]
     Dosage: UNK
     Dates: start: 20040101
  28. AZITHROMYCIN [Concomitant]
     Dosage: UNK
     Dates: start: 20040101

REACTIONS (1)
  - PULMONARY EMBOLISM [None]
